FAERS Safety Report 8515852-3 (Version None)
Quarter: 2012Q3

REPORT INFORMATION
  Report Type: 
  Country: None (occurrence: None)
  Receive Date: 20120717
  Receipt Date: 20120711
  Transmission Date: 20120928
  Serious: Yes (Hospitalization, Other)
  Sender: FDA-Public Use
  Company Number: US-GILEAD-2012-0056129

PATIENT
  Sex: Female

DRUGS (2)
  1. LETAIRIS [Suspect]
     Indication: PULMONARY HYPERTENSION
     Dosage: 5 MG, UNK
     Route: 048
     Dates: start: 20120425, end: 20120509
  2. LETAIRIS [Suspect]

REACTIONS (8)
  - DYSPNOEA [None]
  - HYPERTENSION [None]
  - RENAL FAILURE [None]
  - CORONARY ARTERY DISEASE [None]
  - URINE OUTPUT DECREASED [None]
  - PULMONARY HYPERTENSION [None]
  - CARDIAC FAILURE CONGESTIVE [None]
  - MALAISE [None]
